FAERS Safety Report 17760867 (Version 1)
Quarter: 2020Q2

REPORT INFORMATION
  Report Type: Spontaneous
  Country: FR (occurrence: FR)
  Receive Date: 20200508
  Receipt Date: 20200508
  Transmission Date: 20200714
  Serious: Yes (Hospitalization)
  Sender: FDA-Public Use
  Company Number: FR-009507513-2005FRA000993

PATIENT
  Age: 69 Year
  Sex: Female

DRUGS (1)
  1. PEMBROLIZUMAB. [Suspect]
     Active Substance: PEMBROLIZUMAB
     Indication: NEOPLASM MALIGNANT
     Dosage: 1 DOSAGE FORM
     Route: 042
     Dates: start: 201907, end: 20200220

REACTIONS (2)
  - Pulmonary embolism [Recovering/Resolving]
  - Colitis [Recovered/Resolved]

NARRATIVE: CASE EVENT DATE: 202003
